FAERS Safety Report 16185867 (Version 1)
Quarter: 2019Q2

REPORT INFORMATION
  Report Type: Spontaneous
  Country: CL (occurrence: CL)
  Receive Date: 20190411
  Receipt Date: 20190411
  Transmission Date: 20190711
  Serious: Yes (Other)
  Sender: FDA-Public Use
  Company Number: PHHY2019CL071080

PATIENT
  Age: 89 Year
  Sex: Female

DRUGS (3)
  1. METHYLPREDNISOLONE. [Suspect]
     Active Substance: METHYLPREDNISOLONE
     Indication: TEMPORAL ARTERITIS
     Route: 065
  2. PREDNISONE. [Suspect]
     Active Substance: PREDNISONE
     Indication: TEMPORAL ARTERITIS
     Dosage: UNK
     Route: 048
  3. DEXAMETHASONE. [Suspect]
     Active Substance: DEXAMETHASONE
     Indication: TEMPORAL ARTERITIS
     Route: 042

REACTIONS (4)
  - Product use in unapproved indication [Unknown]
  - Hypotonia [Unknown]
  - Confusional state [Unknown]
  - Cerebral infarction [Unknown]
